FAERS Safety Report 4740734-2 (Version None)
Quarter: 2005Q3

REPORT INFORMATION
  Report Type: 
  Country: None (occurrence: None)
  Receive Date: 20050810
  Receipt Date: 20050801
  Transmission Date: 20060218
  Serious: Yes (Hospitalization)
  Sender: FDA-Public Use
  Company Number: JP-JNJFOC-20050606810

PATIENT
  Sex: Male

DRUGS (12)
  1. RISPERDAL [Suspect]
     Route: 048
  2. RISPERDAL [Suspect]
     Route: 048
  3. RISPERDAL [Suspect]
     Route: 048
  4. RISPERDAL [Suspect]
     Indication: SCHIZOPHRENIA
     Route: 048
  5. VALPROATE SODIUM [Concomitant]
     Indication: SCHIZOPHRENIA
     Route: 048
  6. L-CYSTEINE ETHYLESTER HYDROCHLORIDE [Concomitant]
     Indication: THIRST
     Route: 048
  7. OSTAZOLAM [Concomitant]
     Route: 048
  8. PANTETHINE [Concomitant]
     Indication: CONSTIPATION
     Route: 048
  9. MAGNESIUM OXIDE [Concomitant]
     Indication: CONSTIPATION
     Route: 048
  10. QUAZEPAM [Concomitant]
     Route: 048
  11. LOXOPROFEN [Concomitant]
     Indication: HEADACHE
     Route: 048
  12. ECABET SODIUM [Concomitant]
     Route: 048

REACTIONS (1)
  - PLEURAL INFECTION [None]
